FAERS Safety Report 5419234-2 (Version None)
Quarter: 2007Q3

REPORT INFORMATION
  Report Type: 
  Country: None (occurrence: None)
  Receive Date: 20070820
  Receipt Date: 20070807
  Transmission Date: 20080115
  Serious: Yes (Death, Hospitalization, Other)
  Sender: FDA-Public Use
  Company Number: FR-JNJFOC-20061105355

PATIENT
  Age: 58 Year
  Sex: Male
  Weight: 70 kg

DRUGS (6)
  1. REMICADE [Suspect]
     Route: 042
  2. REMICADE [Suspect]
     Dosage: 3 OR 4 INFUSIONS
     Route: 042
  3. REMICADE [Suspect]
     Indication: ANKYLOSING SPONDYLITIS
     Route: 042
  4. TRAMADOL HCL [Concomitant]
     Route: 048
  5. FORADIL [Concomitant]
     Route: 055
  6. BECLOMETHASONE DIPROPIONATE [Concomitant]
     Route: 055

REACTIONS (1)
  - GLIOBLASTOMA [None]
